FAERS Safety Report 10801917 (Version 1)
Quarter: 2015Q1

REPORT INFORMATION
  Report Type: Report from Study
  Country: US (occurrence: US)
  Receive Date: 20150217
  Receipt Date: 20150217
  Transmission Date: 20150721
  Serious: No
  Sender: FDA-Public Use
  Company Number: US-ABBVIE-14K-163-1266502-00

PATIENT
  Age: 65 Year
  Sex: Male
  Weight: 127.12 kg

DRUGS (8)
  1. GLIPIZIDE. [Concomitant]
     Active Substance: GLIPIZIDE
     Indication: TYPE 2 DIABETES MELLITUS
  2. LISINOPRIL. [Concomitant]
     Active Substance: LISINOPRIL
     Indication: RENAL DISORDER
  3. OMEPRAZOLE. [Concomitant]
     Active Substance: OMEPRAZOLE
     Indication: ABDOMINAL DISCOMFORT
  4. INSULIN [Concomitant]
     Active Substance: INSULIN NOS
     Indication: TYPE 2 DIABETES MELLITUS
  5. METFORMIN [Concomitant]
     Active Substance: METFORMIN HYDROCHLORIDE
     Indication: TYPE 2 DIABETES MELLITUS
  6. HUMIRA [Suspect]
     Active Substance: ADALIMUMAB
     Dates: start: 2005
  7. BALSALAZIDE [Concomitant]
     Active Substance: BALSALAZIDE
     Indication: CROHN^S DISEASE
  8. HUMIRA [Suspect]
     Active Substance: ADALIMUMAB
     Indication: CROHN^S DISEASE
     Dates: start: 2005, end: 2005

REACTIONS (3)
  - Device issue [Unknown]
  - Injection site pain [Not Recovered/Not Resolved]
  - Drug effect decreased [Not Recovered/Not Resolved]

NARRATIVE: CASE EVENT DATE: 2005
